FAERS Safety Report 6997683-9 (Version None)
Quarter: 2010Q3

REPORT INFORMATION
  Report Type: 
  Country: None (occurrence: None)
  Receive Date: 20100918
  Receipt Date: 20091117
  Transmission Date: 20110219
  Serious: No
  Sender: FDA-Public Use
  Company Number: US-WYE-H12221109

PATIENT
  Sex: Female
  Weight: 68.1 kg

DRUGS (8)
  1. PRISTIQ [Suspect]
     Indication: DEPRESSION
     Route: 048
     Dates: start: 20091101, end: 20091113
  2. PRISTIQ [Suspect]
     Route: 048
     Dates: start: 20091116
  3. AMBIEN [Concomitant]
  4. LEXAPRO [Concomitant]
  5. PLAVIX [Concomitant]
  6. TEMAZEPAM [Concomitant]
  7. FEMHRT [Concomitant]
  8. DYAZIDE [Concomitant]

REACTIONS (4)
  - EYE SWELLING [None]
  - LIP SWELLING [None]
  - RASH ERYTHEMATOUS [None]
  - RASH PRURITIC [None]
